FAERS Safety Report 5884326-0 (Version None)
Quarter: 2008Q3

REPORT INFORMATION
  Report Type: 
  Country: None (occurrence: None)
  Receive Date: 20080915
  Receipt Date: 20080908
  Transmission Date: 20090109
  Serious: Yes (Death)
  Sender: FDA-Public Use
  Company Number: JP-B.I. PHARMACEUTICALS,INC./RIDGEFIELD-2008-BP-13900YA

PATIENT
  Age: 56 Year
  Sex: Male

DRUGS (7)
  1. TAMSULOSIN HCL [Suspect]
     Dosage: .2MG
     Route: 048
  2. MYSLEE [Suspect]
     Dosage: 5MG
     Route: 048
  3. SOLANAX [Suspect]
     Route: 048
  4. TOLEDOMIN [Suspect]
     Route: 048
  5. TETRAMIDE [Suspect]
     Route: 048
  6. DEPAS [Suspect]
     Route: 048
  7. SERTRALINE HYDROCHLORIDE [Suspect]
     Route: 048

REACTIONS (1)
  - HEPATITIS FULMINANT [None]
